FAERS Safety Report 25929707 (Version 1)
Quarter: 2025Q4

REPORT INFORMATION
  Report Type: Spontaneous
  Country: US (occurrence: None)
  Receive Date: 20251016
  Receipt Date: 20251016
  Transmission Date: 20260117
  Serious: Yes (Death, Hospitalization)
  Sender: FDA-CTU
  Company Number: None

PATIENT
  Age: 78 Year
  Sex: Male
  Weight: 64.9 kg

DRUGS (1)
  1. TICE BCG [Suspect]
     Active Substance: BACILLUS CALMETTE-GUERIN SUBSTRAIN TICE LIVE ANTIGEN
     Dosage: OTHER FREQUENCY : PATIENT RECEIVED 3 WEEKLY DOSES IN MONTH 3/CYCLE 7 (6/19/25).  PATIENT IS DECEASED SO WILL NOT RECEI;?
     Dates: end: 20250619

REACTIONS (21)
  - Urinary tract infection [None]
  - Myocardial infarction [None]
  - Nephrolithiasis [None]
  - Electrocardiogram QT prolonged [None]
  - Sepsis [None]
  - Hypokalaemia [None]
  - Atrial tachycardia [None]
  - Sinus tachycardia [None]
  - Pulmonary oedema [None]
  - Pneumonia [None]
  - Diarrhoea [None]
  - Dysphagia [None]
  - Aspiration [None]
  - Pleural effusion [None]
  - Agitation [None]
  - Acute respiratory failure [None]
  - Pneumonitis aspiration [None]
  - Citrobacter bacteraemia [None]
  - Pyelonephritis [None]
  - Toxic encephalopathy [None]
  - Dermatitis [None]

NARRATIVE: CASE EVENT DATE: 20250904
